FAERS Safety Report 9616613 (Version 1)
Quarter: 2013Q4

REPORT INFORMATION
  Report Type: Spontaneous
  Country: US (occurrence: US)
  Receive Date: 20131011
  Receipt Date: 20131011
  Transmission Date: 20140711
  Serious: No
  Sender: FDA-Public Use
  Company Number: US-009507513-1310USA005330

PATIENT
  Age: 29 Year
  Sex: Female
  Weight: 83.45 kg

DRUGS (2)
  1. NUVARING [Suspect]
     Indication: CONTRACEPTION
     Dosage: UNK
     Route: 067
     Dates: start: 20131006
  2. AFLURIA [Concomitant]
     Indication: PROPHYLAXIS

REACTIONS (1)
  - Medical device complication [Unknown]
